FAERS Safety Report 15504552 (Version 1)
Quarter: 2018Q4

REPORT INFORMATION
  Report Type: Spontaneous
  Country: AU (occurrence: AU)
  Receive Date: 20181016
  Receipt Date: 20181016
  Transmission Date: 20190205
  Serious: Yes (Hospitalization, Other)
  Sender: FDA-Public Use
  Company Number: AU-SA-2018SA279834

PATIENT
  Sex: Female

DRUGS (2)
  1. IMATINIB SALT NOT SPECIFIED [Suspect]
     Active Substance: IMATINIB
     Dosage: UNK
     Dates: start: 2007
  2. PLAVIX [Suspect]
     Active Substance: CLOPIDOGREL BISULFATE
     Dosage: UNK

REACTIONS (5)
  - Transient ischaemic attack [Unknown]
  - Cerebrovascular accident [Unknown]
  - Contusion [Unknown]
  - Transient global amnesia [Unknown]
  - Eye haemorrhage [Unknown]
